FAERS Safety Report 21329735 (Version 1)
Quarter: 2022Q3

REPORT INFORMATION
  Report Type: Spontaneous
  Country: US (occurrence: None)
  Receive Date: 20220913
  Receipt Date: 20220913
  Transmission Date: 20221027
  Serious: Yes (Hospitalization, Other)
  Sender: FDA-Public Use
  Company Number: None

PATIENT
  Age: 40 Year
  Sex: Female
  Weight: 171.9 kg

DRUGS (1)
  1. OCREVUS [Suspect]
     Active Substance: OCRELIZUMAB
     Indication: Multiple sclerosis
     Dates: start: 20170417, end: 20200601

REACTIONS (6)
  - Pneumonia [None]
  - Infection [None]
  - Staphylococcal infection [None]
  - Legionella infection [None]
  - Enterococcal infection [None]
  - Klebsiella infection [None]

NARRATIVE: CASE EVENT DATE: 20200601
